FAERS Safety Report 6336268-4 (Version None)
Quarter: 2009Q3

REPORT INFORMATION
  Report Type: 
  Country: None (occurrence: None)
  Receive Date: 20090901
  Receipt Date: 20090826
  Transmission Date: 20100115
  Serious: Yes (Other)
  Sender: FDA-Public Use
  Company Number: PHHY2009CA36478

PATIENT
  Sex: Female

DRUGS (1)
  1. SANDOSTATIN LAR [Suspect]
     Indication: NEUROENDOCRINE TUMOUR
     Dosage: 60 MG EVERY 3 WEEKS
     Route: 030
     Dates: start: 20070312

REACTIONS (4)
  - DEPRESSED MOOD [None]
  - METASTASES TO BONE [None]
  - MUSCULOSKELETAL PAIN [None]
  - NECK PAIN [None]
